FAERS Safety Report 10048660 (Version 1)
Quarter: 2014Q1

REPORT INFORMATION
  Report Type: Spontaneous
  Country: US (occurrence: US)
  Receive Date: 20140331
  Receipt Date: 20140331
  Transmission Date: 20141002
  Serious: Yes (Other)
  Sender: FDA-Public Use
  Company Number: US-PFIZER INC-2014087533

PATIENT
  Age: 66 Year
  Sex: Male
  Weight: 78 kg

DRUGS (3)
  1. DIAZEPAM [Suspect]
     Indication: SLEEP DISORDER
     Dosage: UNK
  2. GABAPENTIN [Suspect]
     Indication: NEUROPATHY PERIPHERAL
     Dosage: UNK
  3. METHADONE [Suspect]
     Indication: DRUG DEPENDENCE
     Dosage: UNK

REACTIONS (3)
  - Rib fracture [Unknown]
  - Pain [Unknown]
  - Fall [Unknown]
